FAERS Safety Report 8388759-2 (Version None)
Quarter: 2012Q2

REPORT INFORMATION
  Report Type: 
  Country: None (occurrence: None)
  Receive Date: 20120528
  Receipt Date: 20120517
  Transmission Date: 20120825
  Serious: Yes (Hospitalization)
  Sender: FDA-Public Use
  Company Number: CA-BRISTOL-MYERS SQUIBB COMPANY-16395188

PATIENT
  Age: 53 Year
  Sex: Male

DRUGS (6)
  1. FLUOROURACIL [Suspect]
     Indication: HEAD AND NECK CANCER
     Route: 065
     Dates: start: 20120125, end: 20120206
  2. CISPLATIN [Suspect]
     Indication: HEAD AND NECK CANCER
     Route: 065
     Dates: start: 20120125, end: 20120206
  3. PROCHLORPERAZINE [Concomitant]
     Dates: start: 20120130
  4. CETUXIMAB [Suspect]
     Indication: HEAD AND NECK CANCER
     Dosage: LAST DOSE ON 01FEB2012 BEING THE SECOND INFUSION
     Route: 065
     Dates: start: 20120125, end: 20120206
  5. NYSTATIN [Concomitant]
     Dates: start: 20120206
  6. TYLENOL [Concomitant]
     Dates: start: 20120125

REACTIONS (2)
  - ISCHAEMIC CEREBRAL INFARCTION [None]
  - ROAD TRAFFIC ACCIDENT [None]
